FAERS Safety Report 7775559-7 (Version None)
Quarter: 2011Q3

REPORT INFORMATION
  Report Type: 
  Country: None (occurrence: None)
  Receive Date: 20110921
  Receipt Date: 20110908
  Transmission Date: 20111222
  Serious: Yes (Hospitalization, Other)
  Sender: FDA-Public Use
  Company Number: 2011SP041257

PATIENT
  Age: 41 Year
  Sex: Female

DRUGS (4)
  1. STEROID [Suspect]
     Dosage: IV
     Route: 042
  2. PEG-INTRON [Suspect]
     Indication: HEPATITIS C
  3. REBETOL [Suspect]
     Indication: HEPATITIS C
  4. INTRON A [Suspect]
     Indication: HEPATITIS C
     Dosage: SC
     Route: 058
     Dates: start: 19960101, end: 19960101

REACTIONS (4)
  - LEUKOCYTOCLASTIC VASCULITIS [None]
  - DIABETES MELLITUS [None]
  - RHEUMATOID ARTHRITIS [None]
  - VIRAL LOAD INCREASED [None]
